FAERS Safety Report 10075940 (Version 2)
Quarter: 2014Q2

REPORT INFORMATION
  Report Type: Spontaneous
  Country: US (occurrence: US)
  Receive Date: 20140414
  Receipt Date: 20140520
  Transmission Date: 20141212
  Serious: Yes (Hospitalization)
  Sender: FDA-Public Use
  Company Number: US-SA-2014SA045700

PATIENT
  Age: 72 Year
  Sex: Male
  Weight: 78.01 kg

DRUGS (33)
  1. FLUDARA [Suspect]
     Indication: CHRONIC LYMPHOCYTIC LEUKAEMIA
     Dosage: FREQUENCY: DAY 1,2, 3 EACH CYCLE
     Route: 042
     Dates: start: 20070424, end: 20131004
  2. RITUXAN [Suspect]
     Indication: CHRONIC LYMPHOCYTIC LEUKAEMIA
     Dosage: FREQUENCY: Q 6 MONTHS CYCLE
     Route: 042
     Dates: start: 20070423, end: 20131002
  3. LEUKERAN [Concomitant]
     Dates: start: 20131226
  4. LEUKERAN [Concomitant]
     Route: 048
  5. PARACETAMOL [Concomitant]
     Dates: start: 20120620
  6. ACETYLCYSTEINE [Concomitant]
     Dates: start: 20121023
  7. BENADRYL [Concomitant]
     Dates: start: 20120620
  8. BENADRYL [Concomitant]
     Dosage: I TABLET EVERY 6 HOURS AS PER NEED; 30 TABLETS
     Route: 048
  9. FLONASE [Concomitant]
     Dates: start: 20121002
  10. GRANISETRON [Concomitant]
     Dates: start: 20120620
  11. KEFLEX [Concomitant]
     Dates: start: 20131118
  12. PREDNISONE [Concomitant]
     Dates: start: 20131016
  13. PREDNISONE [Concomitant]
     Dosage: 20MG, TWICE A DAY FOR 07 DAYS
     Route: 048
  14. ALUMINIUM HYDROXIDE GEL/MAGNESIUM HYDROXIDE [Concomitant]
     Dates: start: 20140211
  15. ALTACE [Concomitant]
     Route: 048
  16. ASPIRIN ^BAYER^ [Concomitant]
     Route: 048
  17. CLOPIDOGREL BISULFATE [Concomitant]
     Route: 048
  18. VYTORIN [Concomitant]
     Route: 048
  19. CEFTIN [Concomitant]
     Route: 048
     Dates: start: 20131016, end: 20131118
  20. FAMOTIDINE [Concomitant]
     Route: 042
     Dates: start: 20120620, end: 20120620
  21. INFLUENZA VIRUS VACCINE POLYVALENT [Concomitant]
     Route: 030
     Dates: start: 20140114, end: 20140114
  22. PALONOSETRON [Concomitant]
     Dates: start: 20120622, end: 20131004
  23. SOLU-CORTEF [Concomitant]
     Dates: start: 20120620, end: 20131002
  24. COUMADIN [Concomitant]
     Route: 042
     Dates: end: 20121002
  25. HYDROCODONE/PARACETAMOL [Concomitant]
     Route: 048
     Dates: end: 20121002
  26. PROMETHAZINE HYDROCHLORIDE [Concomitant]
     Dates: end: 20121002
  27. TOPROL XL [Concomitant]
     Route: 048
     Dates: end: 20121002
  28. TOPROL XL [Concomitant]
     Route: 048
  29. ACETYLSALICYLIC ACID [Concomitant]
     Route: 048
  30. PLAVIX [Concomitant]
     Route: 048
  31. FERROUS SULFATE [Concomitant]
     Route: 048
  32. DIOVAN [Concomitant]
     Route: 048
  33. ZOCOR [Concomitant]

REACTIONS (6)
  - Pneumonia cryptococcal [Recovered/Resolved]
  - Hyperhidrosis [Recovered/Resolved]
  - Cough [Recovered/Resolved]
  - Dyspnoea exertional [Recovered/Resolved]
  - Respiratory failure [Recovered/Resolved]
  - Rales [Unknown]
